FAERS Safety Report 9479759 (Version 1)
Quarter: 2013Q3

REPORT INFORMATION
  Report Type: Spontaneous
  Country: US (occurrence: US)
  Receive Date: 20130828
  Receipt Date: 20130828
  Transmission Date: 20140515
  Serious: Yes (Other)
  Sender: FDA-Public Use
  Company Number: US-AMGEN-KDL049102

PATIENT
  Age: 47 Year
  Sex: Female

DRUGS (2)
  1. ENBREL [Suspect]
     Indication: RHEUMATOID ARTHRITIS
     Dosage: 25 MG, 2 TIMES/WK
     Route: 058
     Dates: start: 19990101, end: 20020901
  2. CYCLOPHOSPHAMIDE [Concomitant]
     Dosage: 25 MG, QD

REACTIONS (4)
  - Mixed connective tissue disease [Unknown]
  - Cardiac failure congestive [Unknown]
  - Catheterisation cardiac [Unknown]
  - Biopsy heart [Unknown]
